FAERS Safety Report 24954954 (Version 1)
Quarter: 2025Q1

REPORT INFORMATION
  Report Type: Spontaneous
  Country: US (occurrence: US)
  Receive Date: 20250211
  Receipt Date: 20250211
  Transmission Date: 20250409
  Serious: No
  Sender: ALEXION PHARMACEUTICALS
  Company Number: US-AstraZeneca-CH-00804051A

PATIENT
  Age: 81 Year

DRUGS (5)
  1. TRUQAP [Suspect]
     Active Substance: CAPIVASERTIB
     Route: 065
  2. FULVESTRANT [Suspect]
     Active Substance: FULVESTRANT
     Route: 065
  3. FULVESTRANT [Suspect]
     Active Substance: FULVESTRANT
  4. IMODIUM [Concomitant]
     Active Substance: LOPERAMIDE HYDROCHLORIDE
     Indication: Diarrhoea
     Route: 065
  5. DEVICE [Suspect]
     Active Substance: DEVICE

REACTIONS (2)
  - Diarrhoea [Unknown]
  - Rash [Unknown]
